FAERS Safety Report 22945940 (Version 2)
Quarter: 2024Q1

REPORT INFORMATION
  Report Type: Report from Study
  Country: US (occurrence: US)
  Receive Date: 20230915
  Receipt Date: 20240310
  Transmission Date: 20240409
  Serious: Yes (Other)
  Sender: FDA-Public Use
  Company Number: US-ABBVIE-4764319

PATIENT
  Sex: Female

DRUGS (2)
  1. RINVOQ [Suspect]
     Active Substance: UPADACITINIB
     Indication: Colitis ulcerative
     Dosage: FORM STRENGTH: 15 MILLIGRAM
     Route: 048
     Dates: start: 20221102, end: 20230506
  2. RINVOQ [Suspect]
     Active Substance: UPADACITINIB
     Indication: Colitis ulcerative
     Dosage: FORM STRENGTH: 15 MILLIGRAM
     Route: 048
     Dates: start: 20230507, end: 20230825

REACTIONS (19)
  - Autoimmune hepatitis [Unknown]
  - Mobility decreased [Unknown]
  - Decreased appetite [Unknown]
  - Frequent bowel movements [Unknown]
  - Migraine [Unknown]
  - Haemorrhoids [Unknown]
  - Haematochezia [Unknown]
  - Fatigue [Unknown]
  - Proctalgia [Unknown]
  - Arthralgia [Unknown]
  - Diarrhoea [Unknown]
  - Hepatic enzyme increased [Unknown]
  - Pyrexia [Unknown]
  - Bowel movement irregularity [Unknown]
  - Nasopharyngitis [Unknown]
  - Suspected drug-induced liver injury [Unknown]
  - Viral infection [Unknown]
  - Nausea [Unknown]
  - Asthenia [Unknown]

NARRATIVE: CASE EVENT DATE: 20230101
